FAERS Safety Report 10244948 (Version 1)
Quarter: 2014Q1

REPORT INFORMATION
  Report Type: Spontaneous
  Country: US (occurrence: None)
  Receive Date: 20140306
  Receipt Date: 20140306
  Transmission Date: 20141002
  Serious: Yes (Disabling)
  Sender: FDA-Public Use
  Company Number: 163-21880-13083116

PATIENT
  Age: 79 Year
  Sex: Male

DRUGS (9)
  1. REVLIMID [Suspect]
     Indication: PLASMA CELL MYELOMA
     Dosage: 25 MG , 1 IN 1 D, PO 08/13/2013 - UNKNOWN
     Route: 048
     Dates: start: 20130522
  2. XANAX (ALPRAZOLAM) [Concomitant]
  3. DEXAMETHASONE [Concomitant]
  4. COUMADIN (WARFARIN SODIUM) [Concomitant]
  5. LIPITOR (ATORVASTATIN) [Concomitant]
  6. OMEPRAZOLE [Concomitant]
  7. PROPRANOLOL HCL [Concomitant]
  8. VERAPAMIL [Concomitant]
  9. MULTIVITAMINS [Concomitant]

REACTIONS (1)
  - Fatigue [None]
